FAERS Safety Report 18661970 (Version 8)
Quarter: 2025Q2

REPORT INFORMATION
  Report Type: Report from Study
  Country: US (occurrence: US)
  Receive Date: 20201224
  Receipt Date: 20250620
  Transmission Date: 20250717
  Serious: Yes (Other)
  Sender: TAKEDA
  Company Number: US-TAKEDA-US202003397

PATIENT
  Age: 71 Year
  Sex: Female

DRUGS (2)
  1. HUMAN IMMUNOGLOBULIN G [Suspect]
     Active Substance: HUMAN IMMUNOGLOBULIN G
     Indication: Immunodeficiency common variable
  2. HUMAN IMMUNOGLOBULIN G [Suspect]
     Active Substance: HUMAN IMMUNOGLOBULIN G
     Indication: Primary immunodeficiency syndrome

REACTIONS (28)
  - Cataract [Unknown]
  - Device infusion issue [Unknown]
  - Bladder disorder [Unknown]
  - Abdominal discomfort [Unknown]
  - Malaise [Unknown]
  - Presyncope [Unknown]
  - Viral infection [Recovered/Resolved]
  - Blood immunoglobulin M decreased [Unknown]
  - Herpes zoster [Unknown]
  - Illness [Unknown]
  - Infusion related reaction [Unknown]
  - Loss of personal independence in daily activities [Unknown]
  - Gastroenteritis viral [Unknown]
  - Poor venous access [Unknown]
  - Infection [Unknown]
  - Multiple allergies [Unknown]
  - Brain fog [Unknown]
  - Device use issue [Unknown]
  - Incorrect drug administration rate [Unknown]
  - Inappropriate schedule of product administration [Unknown]
  - COVID-19 [Unknown]
  - Herpes simplex [Unknown]
  - Sinusitis [Unknown]
  - Influenza [Unknown]
  - Feeling abnormal [Unknown]
  - Asthenia [Unknown]
  - Anxiety [Unknown]
  - Fatigue [Unknown]

NARRATIVE: CASE EVENT DATE: 20241031
